FAERS Safety Report 4793851-5 (Version None)
Quarter: 2005Q4

REPORT INFORMATION
  Report Type: 
  Country: None (occurrence: None)
  Receive Date: 20051006
  Receipt Date: 20051006
  Transmission Date: 20060501
  Serious: Yes (Other)
  Sender: FDA-Public Use
  Company Number: None

PATIENT
  Age: 59 Year
  Sex: Female
  Weight: 51.7101 kg

DRUGS (2)
  1. LYRICA [Suspect]
     Indication: ACCIDENT
     Dosage: 2X DAILY PO
     Route: 048
     Dates: start: 20051003, end: 20051004
  2. LYRICA [Suspect]
     Indication: PAIN
     Dosage: 2X DAILY PO
     Route: 048
     Dates: start: 20051003, end: 20051004

REACTIONS (4)
  - ACTIVITIES OF DAILY LIVING IMPAIRED [None]
  - CONTUSION [None]
  - PAIN IN EXTREMITY [None]
  - VISUAL DISTURBANCE [None]
